FAERS Safety Report 22124651 (Version 2)
Quarter: 2023Q2

REPORT INFORMATION
  Report Type: Spontaneous
  Country: US (occurrence: US)
  Receive Date: 20230322
  Receipt Date: 20230504
  Transmission Date: 20230721
  Serious: No
  Sender: FDA-Public Use
  Company Number: US-PFIZER INC-202300118850

PATIENT
  Age: 10 Year
  Sex: Male
  Weight: 27.67 kg

DRUGS (1)
  1. GENOTROPIN [Suspect]
     Active Substance: SOMATROPIN
     Dosage: UNK

REACTIONS (8)
  - Wrong technique in device usage process [Unknown]
  - Device mechanical issue [Unknown]
  - Injection site pain [Unknown]
  - Injection site haemorrhage [Unknown]
  - Emotional distress [Unknown]
  - Tension [Unknown]
  - Anxiety [Unknown]
  - Contusion [Unknown]
